FAERS Safety Report 25582897 (Version 3)
Quarter: 2025Q3

REPORT INFORMATION
  Report Type: Spontaneous
  Country: US (occurrence: US)
  Receive Date: 20250720
  Receipt Date: 20250828
  Transmission Date: 20251020
  Serious: No
  Sender: TAKEDA
  Company Number: US-TAKEDA-2025TUS064108

PATIENT
  Age: 34 Year
  Sex: Female
  Weight: 59 kg

DRUGS (3)
  1. PENTASA [Suspect]
     Active Substance: MESALAMINE
     Indication: Crohn^s disease
  2. PENTASA [Suspect]
     Active Substance: MESALAMINE
  3. PROTONIX [Concomitant]
     Active Substance: PANTOPRAZOLE SODIUM

REACTIONS (4)
  - No adverse event [Unknown]
  - Product physical issue [Unknown]
  - Off label use [Unknown]
  - Product leakage [Unknown]

NARRATIVE: CASE EVENT DATE: 20250711
